FAERS Safety Report 4539031-X (Version None)
Quarter: 2004Q4

REPORT INFORMATION
  Report Type: 
  Country: None (occurrence: None)
  Receive Date: 20041222
  Receipt Date: 20041207
  Transmission Date: 20050328
  Serious: Yes (Other)
  Sender: FDA-Public Use
  Company Number: 10066888-NA01-0

PATIENT
  Age: 11 Year
  Sex: Female
  Weight: 28 kg

DRUGS (2)
  1. DEXTROSE 5% [Suspect]
     Indication: ACUTE LYMPHOCYTIC LEUKAEMIA
     Dosage: 300ML, INTRAVENOUS
     Route: 042
     Dates: start: 20041201, end: 20041201
  2. SODIUM BICARBONATE [Concomitant]

REACTIONS (5)
  - ANAPHYLACTIC REACTION [None]
  - INFUSION RELATED REACTION [None]
  - RASH [None]
  - RESPIRATORY DISTRESS [None]
  - WHEEZING [None]
